FAERS Safety Report 24709291 (Version 1)
Quarter: 2024Q4

REPORT INFORMATION
  Report Type: Report from Study
  Country: RO (occurrence: RO)
  Receive Date: 20241208
  Receipt Date: 20241208
  Transmission Date: 20250115
  Serious: Yes (Death, Other)
  Sender: ABBVIE
  Company Number: RO-ABBVIE-6035329

PATIENT
  Age: 67 Year
  Sex: Male

DRUGS (1)
  1. GLECAPREVIR\PIBRENTASVIR [Suspect]
     Active Substance: GLECAPREVIR\PIBRENTASVIR
     Indication: Hepatic cirrhosis
     Dosage: 300 MG/120 MG
     Route: 048
     Dates: start: 20240809, end: 20241003

REACTIONS (7)
  - Cardio-respiratory arrest [Fatal]
  - Respiratory failure [Fatal]
  - Pneumonia [Fatal]
  - Epilepsy [Fatal]
  - Cerebrovascular accident [Fatal]
  - Hepatitis C [Fatal]
  - Hepatic cirrhosis [Fatal]

NARRATIVE: CASE EVENT DATE: 20240101
